FAERS Safety Report 6427044-2 (Version None)
Quarter: 2009Q4

REPORT INFORMATION
  Report Type: 
  Country: None (occurrence: None)
  Receive Date: 20091104
  Receipt Date: 20091026
  Transmission Date: 20100525
  Serious: Yes (Other)
  Sender: FDA-Public Use
  Company Number: TN-WATSON-2009-09054

PATIENT
  Age: 54 Year
  Sex: Male

DRUGS (1)
  1. DOBUTAMINE HCL [Suspect]
     Indication: STRESS ECHOCARDIOGRAM
     Dosage: 5 TO 40 MCG/KG/MIN
     Route: 042

REACTIONS (3)
  - ARTERIOSPASM CORONARY [None]
  - ELECTROCARDIOGRAM ST SEGMENT ELEVATION [None]
  - MYOCARDIAL INFARCTION [None]
